FAERS Safety Report 8338500-4 (Version None)
Quarter: 2012Q2

REPORT INFORMATION
  Report Type: 
  Country: None (occurrence: None)
  Receive Date: 20120504
  Receipt Date: 20120426
  Transmission Date: 20120825
  Serious: Yes (Death)
  Sender: FDA-Public Use
  Company Number: US-BRISTOL-MYERS SQUIBB COMPANY-16569014

PATIENT
  Sex: Female
  Weight: 50 kg

DRUGS (1)
  1. COUMADIN [Suspect]

REACTIONS (3)
  - MALAISE [None]
  - DEATH [None]
  - EPISTAXIS [None]
